FAERS Safety Report 4633595-3 (Version None)
Quarter: 2005Q2

REPORT INFORMATION
  Report Type: 
  Country: None (occurrence: None)
  Receive Date: 20050412
  Receipt Date: 20050412
  Transmission Date: 20051028
  Serious: Yes (Life-Threatening, Hospitalization)
  Sender: FDA-Public Use
  Company Number: None

PATIENT
  Age: 49 Year
  Sex: Male
  Weight: 65.7 kg

DRUGS (2)
  1. FOSINOPRIL [Suspect]
  2. FUROSEMIDE [Suspect]
     Dosage: 40 MG PO
     Route: 048
     Dates: start: 20041020, end: 20041020

REACTIONS (2)
  - HYPERKALAEMIA [None]
  - RENAL FAILURE [None]
